FAERS Safety Report 18955862 (Version 3)
Quarter: 2021Q1

REPORT INFORMATION
  Report Type: Spontaneous
  Country: BY (occurrence: BY)
  Receive Date: 20210302
  Receipt Date: 20210320
  Transmission Date: 20210420
  Serious: Yes (Life-Threatening, Hospitalization, Other)
  Sender: FDA-Public Use
  Company Number: BY-CELLTRION INC.-2021BY002473

PATIENT

DRUGS (5)
  1. AZATHIOPRINE. [Suspect]
     Active Substance: AZATHIOPRINE
     Indication: CROHN^S DISEASE
     Dosage: 4 TABLETS PER DAY
     Dates: start: 2018
  2. SALOFALK [MESALAZINE] [Suspect]
     Active Substance: MESALAMINE
     Indication: CROHN^S DISEASE
     Dosage: UNK
     Dates: start: 201904
  3. FLAMMEGIS [Suspect]
     Active Substance: INFLIXIMAB
     Dosage: UNK
     Dates: start: 20190711
  4. FLAMMEGIS [Suspect]
     Active Substance: INFLIXIMAB
     Indication: CROHN^S DISEASE
     Dosage: UNK
     Dates: start: 20190627
  5. MERCAPTOPURINE. [Suspect]
     Active Substance: MERCAPTOPURINE
     Indication: CROHN^S DISEASE
     Dosage: UNK
     Dates: start: 201904

REACTIONS (7)
  - Gastrointestinal haemorrhage [Unknown]
  - Melaena [Unknown]
  - Candida infection [Unknown]
  - Contraindicated product administered [Unknown]
  - Condition aggravated [Unknown]
  - Pulmonary tuberculosis [Unknown]
  - Haemoglobin decreased [Unknown]

NARRATIVE: CASE EVENT DATE: 201908
